FAERS Safety Report 8032791-5 (Version None)
Quarter: 2011Q4

REPORT INFORMATION
  Report Type: 
  Country: None (occurrence: None)
  Receive Date: 20111223
  Receipt Date: 20111212
  Transmission Date: 20120403
  Serious: Yes (Other)
  Sender: FDA-Public Use
  Company Number: DSA_48578_2011

PATIENT
  Age: 75 Year
  Sex: Male

DRUGS (4)
  1. XALATAN [Concomitant]
  2. DILTIAZEM HCL [Suspect]
     Indication: PRODUCT USED FOR UNKNOWN INDICATION
     Dosage: 240 MG, DAILY
     Dates: end: 20001017
  3. ASPIRIN [Suspect]
     Indication: PRODUCT USED FOR UNKNOWN INDICATION
     Dosage: 100 MG EVERY OTHER DAY
  4. OMEPRAZOLE [Suspect]
     Indication: OESOPHAGEAL DISORDER
     Dosage: 10 MG, DAILY

REACTIONS (2)
  - TUBULOINTERSTITIAL NEPHRITIS [None]
  - MELAENA [None]
